FAERS Safety Report 13763273 (Version 3)
Quarter: 2018Q3

REPORT INFORMATION
  Report Type: Report from Study
  Country: US (occurrence: US)
  Receive Date: 20170718
  Receipt Date: 20180925
  Transmission Date: 20181010
  Serious: Yes (Hospitalization)
  Sender: FDA-Public Use
  Company Number: US-PFIZER INC-2017267297

PATIENT
  Age: 21 Year
  Sex: Female

DRUGS (11)
  1. MIRALAX [Concomitant]
     Active Substance: POLYETHYLENE GLYCOL 3350
     Dosage: UNK
  2. ZOFRAN [Concomitant]
     Active Substance: ONDANSETRON HYDROCHLORIDE
     Dosage: UNK
     Dates: start: 20170420, end: 20170510
  3. CYTARABINE. [Suspect]
     Active Substance: CYTARABINE
     Indication: ACUTE LYMPHOCYTIC LEUKAEMIA
     Dosage: UNK
     Route: 042
  4. METHOTREXATE SODIUM. [Suspect]
     Active Substance: METHOTREXATE SODIUM
     Indication: ACUTE LYMPHOCYTIC LEUKAEMIA
     Route: 042
  5. MERCAPTOPURINE. [Suspect]
     Active Substance: MERCAPTOPURINE
     Indication: ACUTE LYMPHOCYTIC LEUKAEMIA
     Route: 048
  6. INCB018424 [Suspect]
     Active Substance: RUXOLITINIB
     Dosage: 50 MG, 2X/DAY
     Route: 048
     Dates: start: 20170522
  7. SENNA /00142201/ [Concomitant]
     Active Substance: SENNA LEAF
     Dosage: 8.6 MG, UNK
  8. ZYPREXA [Concomitant]
     Active Substance: OLANZAPINE
     Dosage: UNK
     Dates: start: 20170420, end: 20170510
  9. INCB018424 [Suspect]
     Active Substance: RUXOLITINIB
     Indication: ACUTE LYMPHOCYTIC LEUKAEMIA
     Dosage: 50 MG, BID
     Route: 048
     Dates: start: 20170420
  10. CYCLOPHOSPHAMIDE. [Suspect]
     Active Substance: CYCLOPHOSPHAMIDE
     Indication: ACUTE LYMPHOCYTIC LEUKAEMIA
     Route: 042
  11. BACTRIM [Concomitant]
     Active Substance: SULFAMETHOXAZOLE\TRIMETHOPRIM
     Dosage: 160 MG, UNK

REACTIONS (3)
  - Seizure [Recovered/Resolved]
  - Febrile neutropenia [Recovered/Resolved]
  - Febrile neutropenia [Not Recovered/Not Resolved]

NARRATIVE: CASE EVENT DATE: 20170511
